FAERS Safety Report 4622810-8 (Version None)
Quarter: 2005Q1

REPORT INFORMATION
  Report Type: 
  Country: None (occurrence: None)
  Receive Date: 20050330
  Receipt Date: 20050322
  Transmission Date: 20050727
  Serious: Yes (Hospitalization)
  Sender: FDA-Public Use
  Company Number: PHRM2005FR01126

PATIENT
  Age: 13 Year
  Sex: Female

DRUGS (4)
  1. PREVISCAN [Concomitant]
     Indication: LOWER LIMB FRACTURE
     Route: 048
     Dates: start: 20041001, end: 20041201
  2. VOLTAREN [Suspect]
     Indication: LOWER LIMB FRACTURE
     Route: 048
     Dates: start: 20041012, end: 20041015
  3. PROFENID [Suspect]
     Indication: LOWER LIMB FRACTURE
     Route: 042
     Dates: start: 20041009, end: 20041011
  4. PARACETAMOL [Concomitant]
     Indication: LOWER LIMB FRACTURE
     Dates: start: 20041001

REACTIONS (7)
  - ABDOMINAL PAIN [None]
  - ABNORMAL FAECES [None]
  - COLITIS ULCERATIVE [None]
  - DEFAECATION URGENCY [None]
  - DIARRHOEA HAEMORRHAGIC [None]
  - MICROCYTIC ANAEMIA [None]
  - WEIGHT DECREASED [None]
